FAERS Safety Report 8489218-9 (Version None)
Quarter: 2012Q3

REPORT INFORMATION
  Report Type: 
  Country: None (occurrence: None)
  Receive Date: 20120705
  Receipt Date: 20120621
  Transmission Date: 20120928
  Serious: Yes (Death, Other)
  Sender: FDA-Public Use
  Company Number: ES-CELGENEUS-144-20785-09042039

PATIENT

DRUGS (4)
  1. THALIDOMIDE [Suspect]
     Indication: MULTIPLE MYELOMA
     Dosage: 100 MILLIGRAM
     Route: 048
     Dates: start: 20060401
  2. PREDNISONE [Suspect]
     Indication: MULTIPLE MYELOMA
     Dosage: 60 MILLIGRAM/SQ. METER
     Route: 065
     Dates: start: 20060401
  3. BORTEZOMIB [Suspect]
     Indication: MULTIPLE MYELOMA
     Dosage: 1.3 MILLIGRAM/SQ. METER
     Route: 041
     Dates: start: 20060401
  4. BORTEZOMIB [Suspect]
     Dosage: 1.3 MILLIGRAM/SQ. METER
     Route: 041

REACTIONS (18)
  - ARRHYTHMIA SUPRAVENTRICULAR [None]
  - DEATH [None]
  - ATRIOVENTRICULAR BLOCK [None]
  - THROMBOCYTOPENIA [None]
  - ANAEMIA [None]
  - SEPSIS [None]
  - CARDIAC DISORDER [None]
  - DISEASE PROGRESSION [None]
  - GASTROINTESTINAL TOXICITY [None]
  - CARDIAC FAILURE [None]
  - INFECTION [None]
  - ATRIAL FIBRILLATION [None]
  - MYOCARDIAL INFARCTION [None]
  - NEUROPATHY PERIPHERAL [None]
  - NEUTROPENIA [None]
  - EMBOLISM [None]
  - DEEP VEIN THROMBOSIS [None]
  - HYPOTENSION [None]
